FAERS Safety Report 20649139 (Version 2)
Quarter: 2022Q2

REPORT INFORMATION
  Report Type: Spontaneous
  Country: JP (occurrence: JP)
  Receive Date: 20220329
  Receipt Date: 20220617
  Transmission Date: 20220721
  Serious: Yes (Other)
  Sender: FDA-Public Use
  Company Number: JP-BAYER-2022A045561

PATIENT
  Age: 75 Year
  Sex: Male

DRUGS (1)
  1. NUBEQA [Suspect]
     Active Substance: DAROLUTAMIDE
     Indication: Prostate cancer
     Route: 048
     Dates: start: 20201127, end: 20211224

REACTIONS (1)
  - Prostate cancer metastatic [Unknown]

NARRATIVE: CASE EVENT DATE: 20211224
